FAERS Safety Report 19227935 (Version 1)
Quarter: 2021Q2

REPORT INFORMATION
  Report Type: Spontaneous
  Country: US (occurrence: US)
  Receive Date: 20210506
  Receipt Date: 20210506
  Transmission Date: 20210717
  Serious: No
  Sender: FDA-Public Use
  Company Number: US-ROCHE-2711998

PATIENT
  Sex: Female

DRUGS (20)
  1. LYRICA [Concomitant]
     Active Substance: PREGABALIN
  2. METHOTREXATE. [Concomitant]
     Active Substance: METHOTREXATE
  3. MELOXICAM. [Concomitant]
     Active Substance: MELOXICAM
  4. TERBINAFINE. [Concomitant]
     Active Substance: TERBINAFINE
  5. FLUTICASONE. [Concomitant]
     Active Substance: FLUTICASONE
     Dosage: FRUTICASONE SUS 50MCG/AC
  6. ZOLPIDEMTARTRAAT [Concomitant]
     Active Substance: ZOLPIDEM TARTRATE
  7. DICLOFENAC POTASSIUM. [Concomitant]
     Active Substance: DICLOFENAC POTASSIUM
  8. ESBRIET [Suspect]
     Active Substance: PIRFENIDONE
     Indication: RHEUMATOID ARTHRITIS
     Route: 065
  9. CEPHALEXIN. [Concomitant]
     Active Substance: CEPHALEXIN
  10. PREDNISONE. [Concomitant]
     Active Substance: PREDNISONE
  11. ROSUVASTATIN. [Concomitant]
     Active Substance: ROSUVASTATIN
  12. AZITHROMYCIN ANHYDROUS. [Concomitant]
     Active Substance: AZITHROMYCIN ANHYDROUS
  13. FOLIC ACID. [Concomitant]
     Active Substance: FOLIC ACID
  14. OMEPRAZOLE. [Concomitant]
     Active Substance: OMEPRAZOLE
  15. TIZANIDINE. [Concomitant]
     Active Substance: TIZANIDINE
  16. DULOXETINE. [Concomitant]
     Active Substance: DULOXETINE
     Dosage: DULOXETINE H CPE 30 MG
  17. ATORVASTATIN [Concomitant]
     Active Substance: ATORVASTATIN
     Route: 065
  18. AZELASTINE. [Concomitant]
     Active Substance: AZELASTINE HYDROCHLORIDE
     Dosage: AZELASTINE H SOL 0.15%
  19. HYDROCODONE [Concomitant]
     Active Substance: HYDROCODONE
     Dosage: 10?325 MG
  20. TRAMADOL HCL [Concomitant]
     Active Substance: TRAMADOL HYDROCHLORIDE

REACTIONS (3)
  - Sinusitis [Unknown]
  - Off label use [Unknown]
  - Intentional product use issue [Unknown]
